FAERS Safety Report 15784409 (Version 2)
Quarter: 2019Q1

REPORT INFORMATION
  Report Type: Report from Study
  Country: NL (occurrence: NL)
  Receive Date: 20190103
  Receipt Date: 20190305
  Transmission Date: 20190417
  Serious: Yes (Other)
  Sender: FDA-Public Use
  Company Number: NL-ROCHE-2237879

PATIENT

DRUGS (2)
  1. CAPECITABINE. [Suspect]
     Active Substance: CAPECITABINE
     Indication: CHEMOTHERAPY
     Route: 065
  2. 5-FU [Suspect]
     Active Substance: FLUOROURACIL
     Indication: CHEMOTHERAPY
     Route: 065

REACTIONS (26)
  - Thrombocytopenia [Unknown]
  - Headache [Unknown]
  - Fatigue [Unknown]
  - Palmar-plantar erythrodysaesthesia syndrome [Unknown]
  - Enteritis [Unknown]
  - Cystitis [Unknown]
  - Embolism [Unknown]
  - Nausea [Unknown]
  - Leukopenia [Unknown]
  - Cardiotoxicity [Unknown]
  - Dysgeusia [Unknown]
  - Rash pustular [Unknown]
  - Proctitis [Unknown]
  - Skin hyperpigmentation [Unknown]
  - Small intestine ulcer [Unknown]
  - Mucosal inflammation [Unknown]
  - Enterocolitis [Unknown]
  - Dizziness [Unknown]
  - Multiple organ dysfunction syndrome [Unknown]
  - Vomiting [Unknown]
  - Proctalgia [Unknown]
  - Pyrexia [Unknown]
  - Diarrhoea [Unknown]
  - Neutropenia [Unknown]
  - Anaemia [Unknown]
  - Stomatitis [Unknown]
